FAERS Safety Report 23732964 (Version 2)
Quarter: 2024Q2

REPORT INFORMATION
  Report Type: Spontaneous
  Country: US (occurrence: US)
  Receive Date: 20240411
  Receipt Date: 20240506
  Transmission Date: 20240717
  Serious: No
  Sender: FDA-Public Use
  Company Number: US-Calliditas-2024CAL00557

PATIENT
  Age: 70 Year
  Sex: Male

DRUGS (1)
  1. TARPEYO [Suspect]
     Active Substance: BUDESONIDE
     Indication: Haematuria
     Dosage: 16MG (4MG CAPSULES) ONCE DAILY
     Route: 048
     Dates: start: 20240311

REACTIONS (4)
  - Increased appetite [Unknown]
  - Rash [Recovered/Resolved]
  - Vision blurred [Unknown]
  - Therapeutic response unexpected [Unknown]
